FAERS Safety Report 16530155 (Version 1)
Quarter: 2019Q3

REPORT INFORMATION
  Report Type: Spontaneous
  Country: US (occurrence: US)
  Receive Date: 20190704
  Receipt Date: 20190704
  Transmission Date: 20191004
  Serious: No
  Sender: FDA-Public Use
  Company Number: US-009507513-1906USA010853

PATIENT
  Sex: Female

DRUGS (1)
  1. NUVARING [Suspect]
     Active Substance: ETHINYL ESTRADIOL\ETONOGESTREL
     Indication: CONTRACEPTION
     Dosage: 1 DOSAGE FORM (STRENGHT: 0.015/0.12)
     Route: 067

REACTIONS (3)
  - Nausea [Recovered/Resolved]
  - Incorrect product administration duration [Unknown]
  - Dizziness [Recovered/Resolved]
